FAERS Safety Report 5525659-7 (Version None)
Quarter: 2007Q4

REPORT INFORMATION
  Report Type: 
  Country: None (occurrence: None)
  Receive Date: 20071120
  Receipt Date: 20071112
  Transmission Date: 20080405
  Serious: Yes (Death, Other)
  Sender: FDA-Public Use
  Company Number: 2007US002801

PATIENT
  Age: 16 Year
  Sex: Female

DRUGS (2)
  1. PROGRAF [Suspect]
     Indication: CORD BLOOD TRANSPLANT THERAPY
  2. MYCOPHENOLATE MOFETIL [Concomitant]

REACTIONS (7)
  - GRAFT VERSUS HOST DISEASE [None]
  - HERPES SEPSIS [None]
  - HERPES SIMPLEX [None]
  - ORAL HERPES [None]
  - PANCYTOPENIA [None]
  - PNEUMONIA HERPES VIRAL [None]
  - RESPIRATORY FAILURE [None]
